FAERS Safety Report 20771394 (Version 1)
Quarter: 2022Q2

REPORT INFORMATION
  Report Type: Spontaneous
  Country: US (occurrence: US)
  Receive Date: 20220429
  Receipt Date: 20220429
  Transmission Date: 20220721
  Serious: Yes (Other)
  Sender: FDA-Public Use
  Company Number: US-BAUSCH-BL-2022-010729

PATIENT
  Sex: Male

DRUGS (1)
  1. EFUDEX [Suspect]
     Active Substance: FLUOROURACIL
     Indication: Oesophageal adenocarcinoma
     Route: 065

REACTIONS (4)
  - Neoplasm malignant [Unknown]
  - Oesophageal adenocarcinoma [Unknown]
  - Disease recurrence [Unknown]
  - Alopecia [Unknown]
